FAERS Safety Report 6401450-4 (Version None)
Quarter: 2009Q4

REPORT INFORMATION
  Report Type: 
  Country: None (occurrence: None)
  Receive Date: 20091015
  Receipt Date: 20091007
  Transmission Date: 20100525
  Serious: Yes (Hospitalization)
  Sender: FDA-Public Use
  Company Number: JP-BRISTOL-MYERS SQUIBB COMPANY-14792873

PATIENT
  Age: 55 Year
  Sex: Male
  Weight: 72 kg

DRUGS (7)
  1. ERBITUX [Suspect]
     Indication: COLON CANCER
     Dosage: 02JUN09-04AUG09(250MG/M2)63 DAYS
     Route: 042
     Dates: start: 20090526, end: 20090804
  2. IRINOTECAN HCL [Suspect]
     Indication: COLON CANCER
     Route: 042
     Dates: start: 20090526, end: 20090804
  3. DIPHENHYDRAMINE HCL [Concomitant]
     Indication: PREMEDICATION
     Dosage: TABLET
     Route: 048
     Dates: start: 20090526
  4. DECADRON [Concomitant]
     Indication: PREMEDICATION
     Route: 042
     Dates: start: 20090526
  5. NERIPROCT [Concomitant]
     Indication: HAEMORRHOIDS
     Route: 054
     Dates: start: 20090608, end: 20090810
  6. HACHIAZULE [Concomitant]
     Indication: STOMATITIS
     Route: 048
     Dates: start: 20090608, end: 20090820
  7. KENALOG OINTMENT [Concomitant]
     Indication: STOMATITIS
     Route: 061
     Dates: start: 20090608, end: 20090820

REACTIONS (1)
  - CHOLANGITIS [None]
